FAERS Safety Report 5525259-9 (Version None)
Quarter: 2007Q4

REPORT INFORMATION
  Report Type: 
  Country: None (occurrence: None)
  Receive Date: 20071120
  Receipt Date: 20071105
  Transmission Date: 20080405
  Serious: Yes (Other)
  Sender: FDA-Public Use
  Company Number: DSA_30856_2007

PATIENT
  Sex: Female

DRUGS (5)
  1. VASOTEC [Suspect]
     Indication: HYPERTENSION
     Dosage: 20 MG BID ORAL
     Route: 048
     Dates: start: 20070902
  2. VASOTEC [Suspect]
     Indication: HYPERTENSION
     Dosage: 20 MG  BID ORAL
     Route: 048
     Dates: start: 20070101
  3. ADALAT [Concomitant]
  4. ZIAC [Concomitant]
  5. LIPITOR [Concomitant]

REACTIONS (5)
  - BLOOD PRESSURE INCREASED [None]
  - DRUG INEFFECTIVE [None]
  - ERYTHEMA [None]
  - HEART RATE ABNORMAL [None]
  - MALAISE [None]
